FAERS Safety Report 12577805 (Version 1)
Quarter: 2016Q3

REPORT INFORMATION
  Report Type: Spontaneous
  Country: US (occurrence: None)
  Receive Date: 20160720
  Receipt Date: 20160720
  Transmission Date: 20161109
  Serious: Yes (Other)
  Sender: FDA-Public Use
  Company Number: None

PATIENT
  Age: 23 Year
  Sex: Female
  Weight: 99.79 kg

DRUGS (2)
  1. BUPROPION XL [Concomitant]
     Active Substance: BUPROPION
  2. ADDERALL XR [Suspect]
     Active Substance: AMPHETAMINE ASPARTATE\AMPHETAMINE SULFATE\DEXTROAMPHETAMINE SACCHARATE\DEXTROAMPHETAMINE SULFATE
     Indication: ATTENTION DEFICIT/HYPERACTIVITY DISORDER
     Route: 048
     Dates: start: 20160525, end: 20160719

REACTIONS (5)
  - Drug ineffective [None]
  - Drug interaction [None]
  - Product formulation issue [None]
  - Somnolence [None]
  - Impaired work ability [None]

NARRATIVE: CASE EVENT DATE: 20160525
